FAERS Safety Report 25168528 (Version 1)
Quarter: 2025Q2

REPORT INFORMATION
  Report Type: Spontaneous
  Country: US (occurrence: US)
  Receive Date: 20250407
  Receipt Date: 20250407
  Transmission Date: 20250717
  Serious: No
  Sender: FERRING
  Company Number: US-FERRINGPH-2025FE01121

PATIENT
  Age: 73 Year
  Sex: Female

DRUGS (2)
  1. ADSTILADRIN [Suspect]
     Active Substance: NADOFARAGENE FIRADENOVEC-VNCG
     Indication: Bladder cancer
     Dosage: 75 ML, ONCE/SINGLE
     Route: 043
     Dates: start: 20250306, end: 20250306
  2. OXYBUTYNIN [Concomitant]
     Active Substance: OXYBUTYNIN
     Indication: Bladder spasm
     Dosage: 5 MG, ONCE/SINGLE
     Route: 048
     Dates: start: 20250306, end: 20250306

REACTIONS (3)
  - Expulsion of medication [Recovered/Resolved]
  - Bladder spasm [Recovered/Resolved]
  - Instillation site discharge [Recovered/Resolved]

NARRATIVE: CASE EVENT DATE: 20250306
